FAERS Safety Report 11214512 (Version 21)
Quarter: 2025Q1

REPORT INFORMATION
  Report Type: Report from Study
  Country: CA (occurrence: CA)
  Receive Date: 20150624
  Receipt Date: 20250314
  Transmission Date: 20250408
  Serious: Yes (Other)
  Sender: ROCHE
  Company Number: CA-ROCHE-1598005

PATIENT
  Age: 61 Year
  Sex: Female

DRUGS (16)
  1. XOLAIR [Suspect]
     Active Substance: OMALIZUMAB
     Indication: Asthma
     Route: 058
     Dates: start: 20130826
  2. XOLAIR [Suspect]
     Active Substance: OMALIZUMAB
     Route: 058
     Dates: start: 20170110
  3. XOLAIR [Suspect]
     Active Substance: OMALIZUMAB
     Route: 058
     Dates: start: 20170124
  4. XOLAIR [Suspect]
     Active Substance: OMALIZUMAB
     Route: 058
     Dates: start: 20170307
  5. XOLAIR [Suspect]
     Active Substance: OMALIZUMAB
     Route: 058
     Dates: start: 20170321
  6. XOLAIR [Suspect]
     Active Substance: OMALIZUMAB
     Route: 058
     Dates: start: 20170613
  7. XOLAIR [Suspect]
     Active Substance: OMALIZUMAB
     Route: 058
     Dates: start: 20190625
  8. XOLAIR [Suspect]
     Active Substance: OMALIZUMAB
     Route: 058
     Dates: start: 2019
  9. XOLAIR [Suspect]
     Active Substance: OMALIZUMAB
     Route: 058
  10. XOLAIR [Suspect]
     Active Substance: OMALIZUMAB
     Route: 058
  11. SYMBICORT [Concomitant]
     Active Substance: BUDESONIDE\FORMOTEROL FUMARATE DIHYDRATE
     Indication: Product used for unknown indication
     Dosage: 2 DF, BID
     Route: 055
  12. SPIRIVA [Concomitant]
     Active Substance: TIOTROPIUM BROMIDE MONOHYDRATE
     Indication: Product used for unknown indication
     Dosage: 1 DF, QD
     Route: 055
  13. ALVESCO [Concomitant]
     Active Substance: CICLESONIDE
     Indication: Product used for unknown indication
     Dosage: 2 DF, BID
     Route: 065
     Dates: end: 2021
  14. ALVESCO [Concomitant]
     Active Substance: CICLESONIDE
     Dosage: 2 DF, BID
     Route: 055
  15. SINGULAIR [Concomitant]
     Active Substance: MONTELUKAST SODIUM
     Indication: Product used for unknown indication
     Dosage: 1 DF, QD
     Route: 065
  16. FLOVENT [Concomitant]
     Active Substance: FLUTICASONE PROPIONATE
     Indication: Product used for unknown indication
     Dosage: 2 DOSAGE FORM, BID
     Route: 065

REACTIONS (27)
  - Respiratory tract infection [Unknown]
  - Hypoventilation [Unknown]
  - Nasopharyngitis [Unknown]
  - Forced vital capacity decreased [Unknown]
  - Forced expiratory volume decreased [Recovering/Resolving]
  - Expiratory reserve volume decreased [Unknown]
  - Chest discomfort [Unknown]
  - Wheezing [Unknown]
  - Respiratory tract congestion [Recovering/Resolving]
  - Sensitivity to weather change [Recovering/Resolving]
  - Upper respiratory tract infection [Unknown]
  - Middle insomnia [Unknown]
  - Weight decreased [Unknown]
  - Bronchitis chronic [Unknown]
  - Chronic obstructive pulmonary disease [Unknown]
  - Lung diffusion test decreased [Unknown]
  - Asthma [Not Recovered/Not Resolved]
  - Cough [Unknown]
  - Diarrhoea [Unknown]
  - Malaise [Unknown]
  - Lower respiratory tract infection [Unknown]
  - Obstructive airways disorder [Not Recovered/Not Resolved]
  - Dyspnoea [Unknown]
  - Dizziness [Unknown]
  - Discomfort [Unknown]
  - Weight increased [Unknown]
  - Diabetes mellitus [Unknown]

NARRATIVE: CASE EVENT DATE: 20140601
